FAERS Safety Report 14692415 (Version 2)
Quarter: 2018Q4

REPORT INFORMATION
  Report Type: Spontaneous
  Country: US (occurrence: US)
  Receive Date: 20180329
  Receipt Date: 20181019
  Transmission Date: 20190204
  Serious: No
  Sender: FDA-Public Use
  Company Number: US-PFIZER INC-2018123811

PATIENT
  Age: 64 Year
  Sex: Female

DRUGS (7)
  1. CLOBETASOL [Suspect]
     Active Substance: CLOBETASOL
     Indication: MADAROSIS
     Dosage: UNK
     Route: 061
  2. DEXAMETHASONE. [Suspect]
     Active Substance: DEXAMETHASONE
     Indication: MADAROSIS
     Dosage: UNK
     Route: 061
  3. MINOXIDIL. [Suspect]
     Active Substance: MINOXIDIL
     Indication: MADAROSIS
     Dosage: UNK, DAILY
     Route: 061
  4. TRIAMCINOLONE [Suspect]
     Active Substance: TRIAMCINOLONE
     Indication: MADAROSIS
     Dosage: UNK
     Route: 061
  5. BIMATOPROST. [Suspect]
     Active Substance: BIMATOPROST
     Indication: MADAROSIS
     Dosage: UNK
     Route: 061
  6. BIOTIN [Suspect]
     Active Substance: BIOTIN
     Indication: MADAROSIS
     Dosage: 10000 UG, DAILY
     Route: 061
  7. FLUOCINONIDE. [Suspect]
     Active Substance: FLUOCINONIDE
     Indication: MADAROSIS
     Dosage: UNK
     Route: 061

REACTIONS (3)
  - Social avoidant behaviour [Unknown]
  - Anxiety [Unknown]
  - Product use in unapproved indication [Unknown]
